FAERS Safety Report 7215339-4 (Version None)
Quarter: 2011Q1

REPORT INFORMATION
  Report Type: 
  Country: None (occurrence: None)
  Receive Date: 20110107
  Receipt Date: 20110104
  Transmission Date: 20110831
  Serious: Yes (Death, Other)
  Sender: FDA-Public Use
  Company Number: CH-BAYER-2011-001637

PATIENT
  Age: 60 Year
  Sex: Female

DRUGS (1)
  1. LEPIRUDIN [Suspect]

REACTIONS (2)
  - PERIPHERAL ISCHAEMIA [None]
  - AIR EMBOLISM [None]
